FAERS Safety Report 20997349 (Version 4)
Quarter: 2022Q4

REPORT INFORMATION
  Report Type: Report from Study
  Country: BR (occurrence: BR)
  Receive Date: 20220623
  Receipt Date: 20221216
  Transmission Date: 20230113
  Serious: Yes (Hospitalization)
  Sender: FDA-Public Use
  Company Number: BR-JNJFOC-20220635128

PATIENT
  Age: 36 Year
  Sex: Male
  Weight: 62 kg

DRUGS (4)
  1. INFLIXIMAB [Suspect]
     Active Substance: INFLIXIMAB
     Indication: Colitis ulcerative
     Route: 041
     Dates: start: 202112, end: 202202
  2. REMICADE [Suspect]
     Active Substance: INFLIXIMAB
     Indication: Product used for unknown indication
     Dosage: REMICADE VIAL 100.00 MG
     Route: 041
     Dates: start: 202112, end: 202202
  3. AZATHIOPRINE [Concomitant]
     Active Substance: AZATHIOPRINE
  4. LANTUS [Concomitant]
     Active Substance: INSULIN GLARGINE

REACTIONS (8)
  - Hypotension [Unknown]
  - Anaemia [Unknown]
  - Polyuria [Unknown]
  - Gait disturbance [Recovering/Resolving]
  - Eating disorder symptom [Recovering/Resolving]
  - Colitis ulcerative [Unknown]
  - SARS-CoV-2 test positive [Unknown]
  - Drug ineffective [Unknown]
